FAERS Safety Report 10282649 (Version 1)
Quarter: 2014Q3

REPORT INFORMATION
  Report Type: Report from Study
  Country: US (occurrence: US)
  Receive Date: 20140707
  Receipt Date: 20140707
  Transmission Date: 20150326
  Serious: Yes (Other)
  Sender: FDA-Public Use
  Company Number: US-ALEXION PHARMACEUTICALS INC.-A200800670

PATIENT
  Age: 73 Year
  Sex: Male

DRUGS (1)
  1. SOLIRIS [Suspect]
     Active Substance: ECULIZUMAB
     Indication: PAROXYSMAL NOCTURNAL HAEMOGLOBINURIA
     Dosage: UNK
     Route: 042

REACTIONS (5)
  - Decreased appetite [Unknown]
  - Depressed mood [Unknown]
  - Insomnia [Unknown]
  - Transfusion [Unknown]
  - Pyrexia [Unknown]

NARRATIVE: CASE EVENT DATE: 20081008
